FAERS Safety Report 23492710 (Version 1)
Quarter: 2024Q1

REPORT INFORMATION
  Report Type: Report from Study
  Country: US (occurrence: None)
  Receive Date: 20240207
  Receipt Date: 20240207
  Transmission Date: 20240410
  Serious: Yes (Hospitalization)
  Sender: FDA-Public Use
  Company Number: 2024A028146

PATIENT
  Sex: Female

DRUGS (21)
  1. FASENRA [Suspect]
     Active Substance: BENRALIZUMAB
     Indication: Chronic sinusitis
     Dosage: 30MG/ML EVERY EIGHT WEEKS
     Route: 058
     Dates: start: 202311
  2. BREZTRI [Suspect]
     Active Substance: BUDESONIDE\FORMOTEROL\GLYCOPYRROLATE
     Dosage: 160-9-4
     Route: 055
  3. OMEPRAZOLE [Suspect]
     Active Substance: OMEPRAZOLE
     Dosage: 40MEQ/L
  4. BENZONATATE [Concomitant]
     Active Substance: BENZONATATE
  5. HYDROCODONE [Concomitant]
     Active Substance: HYDROCODONE
  6. IPRATROPIUM [Concomitant]
     Active Substance: IPRATROPIUM
  7. BREZTRI AERO AER [Concomitant]
     Dosage: 160-9-4
  8. FLUOXETINE H [Concomitant]
     Dosage: 10.0MG UNKNOWN
  9. ALBUTEROL SU AER [Concomitant]
     Dosage: 10810.0MG UNKNOWN
  10. ALPRAZOLAM [Concomitant]
     Active Substance: ALPRAZOLAM
  11. AZITHROMYCIN [Concomitant]
     Active Substance: AZITHROMYCIN
     Dosage: 600.0MG UNKNOWN
  12. LEVOTHYROXINE [Concomitant]
     Active Substance: LEVOTHYROXINE\LEVOTHYROXINE SODIUM
     Dosage: 200.0UG UNKNOWN
  13. METHOCARBAMOL [Concomitant]
     Active Substance: METHOCARBAMOL
     Dosage: 750.0MG UNKNOWN
  14. LINZESS [Concomitant]
     Active Substance: LINACLOTIDE
     Dosage: 290.0UG UNKNOWN
  15. LORATADINE [Concomitant]
     Active Substance: LORATADINE
     Dosage: 10.0MG UNKNOWN
  16. MOTRIN IB [Concomitant]
     Active Substance: IBUPROFEN
     Dosage: 200.0MG UNKNOWN
  17. OMEPRAZOLE [Concomitant]
     Active Substance: OMEPRAZOLE
     Dosage: 40MEQ/L
  18. PROMETHAZINE [Concomitant]
     Active Substance: PROMETHAZINE HYDROCHLORIDE
     Dosage: 25.0MG UNKNOWN
  19. SPIRIVA RESP AER [Concomitant]
     Dosage: 2.5MG UNKNOWN
  20. TRELEGY ELLI AEP [Concomitant]
     Dosage: 200-62.5
  21. VITAMIN D3 [Concomitant]
     Active Substance: CHOLECALCIFEROL
     Dosage: 1000 UNIT

REACTIONS (1)
  - Respiratory syncytial virus infection [Not Recovered/Not Resolved]
